FAERS Safety Report 4527113-8 (Version None)
Quarter: 2004Q4

REPORT INFORMATION
  Report Type: 
  Country: None (occurrence: None)
  Receive Date: 20041201
  Receipt Date: 20040930
  Transmission Date: 20050328
  Serious: Yes (Hospitalization)
  Sender: FDA-Public Use
  Company Number: US093849

PATIENT
  Age: 59 Year
  Sex: Female

DRUGS (9)
  1. ENBREL [Suspect]
     Indication: RHEUMATOID ARTHRITIS
     Dosage: 25 MG, 2 IN 1 WEEKS
     Dates: start: 20030925
  2. METHOTREXATE [Concomitant]
  3. ROFECOXIB [Concomitant]
  4. VENLAFAXINE HCL [Concomitant]
  5. ESCITALOPRAM [Concomitant]
  6. IPRATROPIUM BROMIDE/ALBUTEROL SULFATE [Concomitant]
  7. ESOMEPRAZOLE MAGNESIUM [Concomitant]
  8. FOLIC ACID [Concomitant]
  9. TRAMADOL HCL [Concomitant]

REACTIONS (2)
  - CHRONIC OBSTRUCTIVE AIRWAYS DISEASE EXACERBATED [None]
  - INJECTION SITE HAEMORRHAGE [None]
